FAERS Safety Report 10929322 (Version 2)
Quarter: 2015Q2

REPORT INFORMATION
  Report Type: Spontaneous
  Country: DE (occurrence: None)
  Receive Date: 20150317
  Receipt Date: 20150420
  Transmission Date: 20150821
  Serious: Yes (Other)
  Sender: FDA-Public Use
  Company Number: FK201501240

PATIENT
  Age: 47 Year
  Sex: Female

DRUGS (5)
  1. EPIRUBICIN (MANUFACTURER UNKNOWN) (EPIRUBICIN HYDROCHLORIDE) (EPIRUBICIN HYDROCHLORIDE) [Suspect]
     Active Substance: EPIRUBICIN
     Indication: BREAST CANCER
  2. DOCETAXEL (MANUFACTURER UNKNOWN) (DOCETAXEL) (DOCETAXEL) [Suspect]
     Active Substance: DOCETAXEL
     Indication: BREAST CANCER
  3. TAMOXIFEN (MANUFACTURER UNKNOWN) (TAMOXIFEN) (TAMOXIFEN) [Suspect]
     Active Substance: TAMOXIFEN
     Indication: BREAST CANCER
     Dates: start: 200812
  4. HYPERICUM (HYPERICUM [ERFORATIUM) [Concomitant]
  5. SERTRALINE [Concomitant]
     Active Substance: SERTRALINE HYDROCHLORIDE

REACTIONS (19)
  - Polyneuropathy [None]
  - Hot flush [None]
  - Decreased activity [None]
  - Depressed mood [None]
  - Cognitive disorder [None]
  - Memory impairment [None]
  - Vulvovaginal dryness [None]
  - Libido decreased [None]
  - Fatigue [None]
  - Apathy [None]
  - Depression [None]
  - Anxiety disorder [None]
  - Hyperhidrosis [None]
  - Burning sensation [None]
  - Arthropathy [None]
  - Anxiety [None]
  - Initial insomnia [None]
  - Menopausal disorder [None]
  - Disturbance in attention [None]
